FAERS Safety Report 25325453 (Version 3)
Quarter: 2025Q4

REPORT INFORMATION
  Report Type: Spontaneous
  Country: JP (occurrence: JP)
  Receive Date: 20250516
  Receipt Date: 20251211
  Transmission Date: 20260117
  Serious: Yes (Other)
  Sender: AMGEN
  Company Number: JP-BEH-2025204920

PATIENT
  Age: 73 Year
  Sex: Female

DRUGS (16)
  1. TAVNEOS [Suspect]
     Active Substance: AVACOPAN
     Indication: Microscopic polyangiitis
     Dosage: 60 MG, QD
     Route: 048
     Dates: start: 202402, end: 202404
  2. TAVNEOS [Suspect]
     Active Substance: AVACOPAN
     Dosage: 60 MG, QD
     Route: 048
     Dates: start: 2024
  3. PREDNISOLONE [Concomitant]
     Active Substance: PREDNISOLONE
     Indication: Microscopic polyangiitis
     Dosage: 40 MG, QD
     Route: 065
  4. PREDNISOLONE [Concomitant]
     Active Substance: PREDNISOLONE
     Indication: Interstitial lung disease
     Dosage: 7 MG, QD
     Route: 065
  5. PREDNISOLONE [Concomitant]
     Active Substance: PREDNISOLONE
     Dosage: 12.5 MG, QD
     Route: 065
  6. PREDNISOLONE [Concomitant]
     Active Substance: PREDNISOLONE
     Dosage: 5 MG, QD
     Route: 065
  7. BOS TAURUS ADRENAL CORTEX CORTICOSTEROIDS [Concomitant]
     Active Substance: BOS TAURUS ADRENAL CORTEX CORTICOSTEROIDS
     Indication: Microscopic polyangiitis
     Dosage: 7 MG
     Route: 065
  8. BOS TAURUS ADRENAL CORTEX CORTICOSTEROIDS [Concomitant]
     Active Substance: BOS TAURUS ADRENAL CORTEX CORTICOSTEROIDS
     Indication: Interstitial lung disease
     Dosage: 12.5 MG, QD
     Route: 065
     Dates: start: 2024
  9. CANDESARTAN [Concomitant]
     Active Substance: CANDESARTAN
     Dosage: 8 MG, QD
     Route: 048
  10. AMLODIPINE [Concomitant]
     Active Substance: AMLODIPINE BESYLATE
     Dosage: 5 MG, QD
     Route: 048
  11. LANSOPRAZOLE [Concomitant]
     Active Substance: LANSOPRAZOLE
     Dosage: 15 MG, QD
     Route: 048
  12. MOVICOL [Concomitant]
     Active Substance: POLYETHYLENE GLYCOL 3350\POTASSIUM CHLORIDE\SODIUM BICARBONATE\SODIUM CHLORIDE
     Dosage: 1 DF POWDER MEDICINE
     Route: 048
  13. LINAGLIPTIN [Concomitant]
     Active Substance: LINAGLIPTIN
     Dosage: 5 MG, QD
     Route: 048
  14. ALENDRONATE [Concomitant]
     Active Substance: ALENDRONATE SODIUM
     Dosage: 35 MG, QW
     Route: 048
  15. SULFAMETHOXAZOLE\TRIMETHOPRIM [Concomitant]
     Active Substance: SULFAMETHOXAZOLE\TRIMETHOPRIM
     Dosage: 0.5 DF, QD
     Route: 048
  16. RITUXIMAB [Concomitant]
     Active Substance: RITUXIMAB
     Dosage: UNK
     Route: 040

REACTIONS (2)
  - Interstitial lung disease [Not Recovered/Not Resolved]
  - Pulmonary embolism [Recovering/Resolving]

NARRATIVE: CASE EVENT DATE: 20240401
